FAERS Safety Report 16394671 (Version 1)
Quarter: 2019Q3

REPORT INFORMATION
  Report Type: Spontaneous
  Country: US (occurrence: US)
  Receive Date: 20190604
  Receipt Date: 20190604
  Transmission Date: 20191004
  Serious: Yes (Hospitalization)
  Sender: FDA-Public Use
  Company Number: None

PATIENT
  Sex: Female
  Weight: 67.86 kg

DRUGS (5)
  1. FERROUS SULFATE. [Concomitant]
     Active Substance: FERROUS SULFATE
  2. OXYCODONE [Concomitant]
     Active Substance: OXYCODONE
  3. FUROSEMIDE. [Concomitant]
     Active Substance: FUROSEMIDE
  4. CAPECITABINE. [Suspect]
     Active Substance: CAPECITABINE
     Route: 048
  5. COLACE [Concomitant]
     Active Substance: DOCUSATE SODIUM

REACTIONS (1)
  - Hospitalisation [None]
